FAERS Safety Report 4449158-9 (Version None)
Quarter: 2004Q3

REPORT INFORMATION
  Report Type: 
  Country: None (occurrence: None)
  Receive Date: 20040910
  Receipt Date: 20040902
  Transmission Date: 20050211
  Serious: Yes (Death, Hospitalization)
  Sender: FDA-Public Use
  Company Number: A044-002-005165

PATIENT
  Age: 88 Year
  Sex: Female

DRUGS (7)
  1. ARICEPT [Suspect]
     Indication: DEMENTIA ALZHEIMER'S TYPE
     Dosage: SEE IMAGE, ORAL
     Route: 048
     Dates: start: 20040622, end: 20040730
  2. ARICEPT [Suspect]
     Indication: DEMENTIA ALZHEIMER'S TYPE
     Dosage: SEE IMAGE, ORAL
     Route: 048
     Dates: start: 20040731, end: 20040803
  3. SERTRALINE HYDROCHLORIDE [Suspect]
     Dosage: 50 MG, ORAL
     Route: 048
     Dates: end: 20040730
  4. SINTROM [Suspect]
     Dosage: ORAL
     Route: 048
     Dates: end: 20040803
  5. LEVOTHYROXINE SODIUM [Concomitant]
  6. ENALAPRIL MALEATE [Concomitant]
  7. ALDALIX (OSYROL-LASIX) [Concomitant]

REACTIONS (19)
  - ACUTE LEFT VENTRICULAR FAILURE [None]
  - ATRIAL FIBRILLATION [None]
  - BLOOD PRESSURE DECREASED [None]
  - BUNDLE BRANCH BLOCK RIGHT [None]
  - CEREBRAL HAEMATOMA [None]
  - CONFUSIONAL STATE [None]
  - DECEREBRATION [None]
  - EPILEPSY [None]
  - EXTENSOR PLANTAR RESPONSE [None]
  - FALL [None]
  - HAEMORRHAGIC STROKE [None]
  - HEAD INJURY [None]
  - HYPERREFLEXIA [None]
  - IATROGENIC INJURY [None]
  - ISCHAEMIC STROKE [None]
  - MYDRIASIS [None]
  - MYOCLONUS [None]
  - OVERDOSE [None]
  - RENAL FAILURE [None]
